FAERS Safety Report 15689577 (Version 1)
Quarter: 2018Q4

REPORT INFORMATION
  Report Type: Spontaneous
  Country: US (occurrence: US)
  Receive Date: 20181204
  Receipt Date: 20181204
  Transmission Date: 20190205
  Serious: Yes (Other)
  Sender: FDA-Public Use
  Company Number: None

PATIENT
  Age: 63 Year
  Sex: Male
  Weight: 81.9 kg

DRUGS (1)
  1. ENTYVIO [Suspect]
     Active Substance: VEDOLIZUMAB
     Indication: CROHN^S DISEASE
     Dosage: ?          OTHER STRENGTH:INFUSION EVERY 4 W;QUANTITY:300 INJECTION(S);OTHER FREQUENCY:EVERY 4 WEEKS;?
     Route: 042
     Dates: start: 20161107, end: 20180619

REACTIONS (10)
  - Asthenia [None]
  - Insomnia [None]
  - Back pain [None]
  - Nasal congestion [None]
  - Blood growth hormone decreased [None]
  - Central nervous system lesion [None]
  - Arthralgia [None]
  - Cough [None]
  - Hypertension [None]
  - Oropharyngeal pain [None]

NARRATIVE: CASE EVENT DATE: 20180425
